FAERS Safety Report 16379646 (Version 1)
Quarter: 2019Q2

REPORT INFORMATION
  Report Type: Spontaneous
  Country: JP (occurrence: JP)
  Receive Date: 20190531
  Receipt Date: 20190531
  Transmission Date: 20190711
  Serious: Yes (Other)
  Sender: FDA-Public Use
  Company Number: JP-ELI_LILLY_AND_COMPANY-JP201905012607

PATIENT
  Age: 60 Year
  Sex: Female

DRUGS (5)
  1. LEVOFOLINATE CALCIUM [Concomitant]
     Active Substance: LEVOLEUCOVORIN CALCIUM
     Indication: COLON CANCER
     Dosage: UNK
     Route: 042
  2. ERBITUX [Suspect]
     Active Substance: CETUXIMAB
     Indication: COLON CANCER
     Dosage: 400 MG/M2, UNKNOWN
     Route: 041
  3. OXALIPLATIN. [Concomitant]
     Active Substance: OXALIPLATIN
     Indication: COLON CANCER
     Dosage: UNK
     Route: 042
  4. ERBITUX [Suspect]
     Active Substance: CETUXIMAB
     Dosage: 250 MG/M2, WEEKLY (1/W)
     Route: 041
     Dates: end: 20190514
  5. 5-FU FLUOROURACIL [Concomitant]
     Indication: COLON CANCER
     Dosage: RAPID INTRAVENOUS INJECTION AND CONTINUOUS TAIL VEIN INJECTION
     Route: 042

REACTIONS (1)
  - Gastrointestinal stoma necrosis [Not Recovered/Not Resolved]

NARRATIVE: CASE EVENT DATE: 201905
